FAERS Safety Report 6782268-X (Version None)
Quarter: 2010Q2

REPORT INFORMATION
  Report Type: 
  Country: None (occurrence: None)
  Receive Date: 20100621
  Receipt Date: 20100611
  Transmission Date: 20101027
  Serious: Yes (Other)
  Sender: FDA-Public Use
  Company Number: US-JNJFOC-20100500691

PATIENT
  Age: 20 Month
  Sex: Male
  Weight: 14.06 kg

DRUGS (9)
  1. CONCENTRATED MOTRIN INFANTS DROPS [Suspect]
     Indication: EAR INFECTION
     Route: 048
  2. CONCENTRATED MOTRIN INFANTS DROPS [Suspect]
     Route: 048
  3. CONCENTRATED MOTRIN INFANTS DROPS [Suspect]
     Indication: PYREXIA
     Route: 048
  4. CONCENTRATED MOTRIN INFANTS DROPS [Suspect]
     Route: 048
  5. AMOXICILLIN [Suspect]
     Indication: EAR INFECTION
     Route: 048
  6. CONCENTRATED TYLENOL INFANT DROPS [Suspect]
     Indication: EAR INFECTION
     Dosage: PARENT STATED GAVE 2-3 TIMES AS NEEDED
     Route: 048
  7. CONCENTRATED TYLENOL INFANT DROPS [Suspect]
     Route: 048
  8. CONCENTRATED TYLENOL INFANT DROPS [Suspect]
     Indication: PYREXIA
     Route: 048
  9. CONCENTRATED TYLENOL INFANT DROPS [Suspect]
     Dosage: PARENT STATED GAVE 2-3 TIMES AS NEEDED
     Route: 048

REACTIONS (3)
  - LIVER INJURY [None]
  - PRODUCT QUALITY ISSUE [None]
  - SKIN DISCOLOURATION [None]
